FAERS Safety Report 16068543 (Version 2)
Quarter: 2019Q2

REPORT INFORMATION
  Report Type: Spontaneous
  Country: US (occurrence: US)
  Receive Date: 20190313
  Receipt Date: 20190501
  Transmission Date: 20190711
  Serious: Yes (Other)
  Sender: FDA-Public Use
  Company Number: US-VIFOR (INTERNATIONAL) INC.-VIT-2019-02127

PATIENT
  Age: 65 Year
  Sex: Female
  Weight: 88.98 kg

DRUGS (14)
  1. VELTASSA [Suspect]
     Active Substance: PATIROMER
     Dosage: TWO PACKETS IN THE MORNING AND ONE AT NIGHT
     Route: 048
     Dates: start: 201902, end: 20190304
  2. VELTASSA [Suspect]
     Active Substance: PATIROMER
     Dates: start: 201812
  3. COREG [Concomitant]
     Active Substance: CARVEDILOL
  4. HYDRALAZINE [Concomitant]
     Active Substance: HYDRALAZINE HYDROCHLORIDE
  5. LANTUS [Concomitant]
     Active Substance: INSULIN GLARGINE
     Dosage: BEFORE GOING TO BED
  6. FISH OIL [Concomitant]
     Active Substance: FISH OIL
  7. VELTASSA [Suspect]
     Active Substance: PATIROMER
     Indication: BLOOD POTASSIUM
     Route: 048
     Dates: start: 201901
  8. LASIX [Concomitant]
     Active Substance: FUROSEMIDE
     Dosage: NIGHT
  9. PROCRIT [Concomitant]
     Active Substance: ERYTHROPOIETIN
  10. CINNAMON. [Concomitant]
     Active Substance: CINNAMON
  11. ELIQUIS [Concomitant]
     Active Substance: APIXABAN
  12. LASIX [Concomitant]
     Active Substance: FUROSEMIDE
     Dosage: MORNING
  13. SODIUM BICARBONATE. [Concomitant]
     Active Substance: SODIUM BICARBONATE
     Dosage: TWO IN MORNING AND TWO AT NIGHT.
  14. GABAPENTIN. [Concomitant]
     Active Substance: GABAPENTIN

REACTIONS (5)
  - Blood potassium increased [Recovered/Resolved]
  - Off label use [Unknown]
  - Haemoglobin decreased [Unknown]
  - Product dose omission [Unknown]
  - Cataract [Unknown]

NARRATIVE: CASE EVENT DATE: 201901
